FAERS Safety Report 22399626 (Version 1)
Quarter: 2023Q2

REPORT INFORMATION
  Report Type: Spontaneous
  Country: NL (occurrence: NL)
  Receive Date: 20230602
  Receipt Date: 20230602
  Transmission Date: 20230721
  Serious: Yes (Disabling)
  Sender: FDA-Public Use
  Company Number: None

PATIENT
  Sex: Female
  Weight: 70 kg

DRUGS (3)
  1. ARTICAINE HYDROCHLORIDE\EPINEPHRINE HYDROCHLORIDE [Suspect]
     Active Substance: ARTICAINE HYDROCHLORIDE\EPINEPHRINE HYDROCHLORIDE
     Indication: Tooth extraction
     Dosage: HAD 3 SYRINGES
     Dates: start: 20210415
  2. METOPROLOL  TEVA TABLET  50MG [Concomitant]
     Indication: Migraine
     Dosage: 1 TABLET PER DAY
     Dates: start: 19950101
  3. HYDROXOCOBALAMINE INJVLST   (HCL) / 500MCG/ML AMPUL 2ML [Concomitant]
     Indication: Alopecia
     Dosage: 1X 3 WEEK
     Dates: start: 20180916

REACTIONS (12)
  - Fatigue [Not Recovered/Not Resolved]
  - Brain fog [Not Recovered/Not Resolved]
  - Muscular weakness [Not Recovered/Not Resolved]
  - Dizziness [Recovering/Resolving]
  - Pain in extremity [Not Recovered/Not Resolved]
  - Sensory overload [Not Recovered/Not Resolved]
  - Limb discomfort [Recovering/Resolving]
  - Hypoacusis [Not Recovered/Not Resolved]
  - Disturbance in attention [Not Recovered/Not Resolved]
  - Gait disturbance [Not Recovered/Not Resolved]
  - Tinnitus [Not Recovered/Not Resolved]
  - Malaise [Unknown]
